FAERS Safety Report 8159187-X (Version None)
Quarter: 2012Q1

REPORT INFORMATION
  Report Type: 
  Country: None (occurrence: None)
  Receive Date: 20120217
  Receipt Date: 20120207
  Transmission Date: 20120608
  Serious: Yes (Hospitalization)
  Sender: FDA-Public Use
  Company Number: 216777

PATIENT
  Age: 84 Year
  Sex: Female
  Weight: 32 kg

DRUGS (6)
  1. LASIX [Concomitant]
  2. EBASTINE [Concomitant]
  3. GOSHAJINKIAN (GOSHAJINKIGAN) [Concomitant]
  4. DAIVONEX OINTMENT (CALCIPOTRIOL) (OINTMENT) [Suspect]
     Indication: PSORIASIS
     Dosage: TOPICAL
     Route: 061
  5. BIOTIN (BIOTIN) [Concomitant]
  6. DIOVANI (VALSARTAN) [Concomitant]

REACTIONS (10)
  - KETONURIA [None]
  - RENAL FAILURE [None]
  - WHITE BLOOD CELLS URINE POSITIVE [None]
  - BUNDLE BRANCH BLOCK RIGHT [None]
  - BLOOD POTASSIUM DECREASED [None]
  - UROBILINOGEN URINE [None]
  - BLOOD ALKALINE PHOSPHATASE INCREASED [None]
  - CHEST X-RAY ABNORMAL [None]
  - SINUS BRADYCARDIA [None]
  - HAEMATURIA [None]
